FAERS Safety Report 24589448 (Version 1)
Quarter: 2024Q4

REPORT INFORMATION
  Report Type: Spontaneous
  Country: DK (occurrence: DK)
  Receive Date: 20241107
  Receipt Date: 20241107
  Transmission Date: 20250115
  Serious: Yes (Other)
  Sender: ELI LILLY AND COMPANY
  Company Number: DK-ELI_LILLY_AND_COMPANY-DK202410018844

PATIENT
  Age: 69 Year
  Sex: Male

DRUGS (2)
  1. OMVOH [Suspect]
     Active Substance: MIRIKIZUMAB-MRKZ
     Indication: Colitis ulcerative
     Dosage: UNK UNK, UNKNOWN
     Route: 065
     Dates: start: 20240521
  2. OMVOH [Suspect]
     Active Substance: MIRIKIZUMAB-MRKZ
     Dosage: UNK UNK, UNKNOWN
     Route: 065
     Dates: start: 20240619

REACTIONS (3)
  - Poor peripheral circulation [Unknown]
  - Neuropathy peripheral [Unknown]
  - Paraesthesia [Unknown]

NARRATIVE: CASE EVENT DATE: 20240701
